FAERS Safety Report 6464013-0 (Version None)
Quarter: 2009Q4

REPORT INFORMATION
  Report Type: 
  Country: None (occurrence: None)
  Receive Date: 20091201
  Receipt Date: 20091119
  Transmission Date: 20100525
  Serious: Yes (Other)
  Sender: FDA-Public Use
  Company Number: FR-AMGEN-US374154

PATIENT
  Age: 44 Year
  Sex: Female

DRUGS (1)
  1. ENBREL [Suspect]
     Indication: PSORIATIC ARTHROPATHY
     Dosage: UNKNOWN FROM JAN-2008 TO UNSPEC. DATE AND THEN 50 MG 1 TIME EVERY 2 WEEKS FROM UNSPEC. DATE
     Route: 058
     Dates: start: 20080101

REACTIONS (5)
  - HYPOAESTHESIA [None]
  - NAUSEA [None]
  - OEDEMA [None]
  - VISUAL ACUITY REDUCED [None]
  - VITREOUS FLOATERS [None]
